FAERS Safety Report 9187939 (Version 1)
Quarter: 2013Q1

REPORT INFORMATION
  Report Type: Spontaneous
  Country: US (occurrence: US)
  Receive Date: 20130325
  Receipt Date: 20130325
  Transmission Date: 20140127
  Serious: No
  Sender: FDA-Public Use
  Company Number: US-MYLANLABS-2012S1019499

PATIENT
  Age: 86 Year
  Sex: Female

DRUGS (8)
  1. FENTANYL TRANSDERMAL SYSTEM [Suspect]
     Indication: BACK PAIN
     Dosage: Q72H
     Route: 062
     Dates: start: 201206
  2. FENTANYL TRANSDERMAL SYSTEM [Suspect]
     Indication: MUSCULOSKELETAL PAIN
     Dosage: Q72H
     Route: 062
     Dates: start: 201206
  3. FENTANYL TRANSDERMAL SYSTEM [Suspect]
     Indication: ARTHRALGIA
     Dosage: Q72H
     Route: 062
     Dates: start: 201206
  4. PREMARIN [Concomitant]
     Indication: HORMONE REPLACEMENT THERAPY
  5. SYNTHROID [Concomitant]
     Indication: HYPOTHYROIDISM
  6. COZAAR [Concomitant]
     Indication: BLOOD PRESSURE INCREASED
  7. UREX [Concomitant]
     Indication: CYSTITIS
     Dates: start: 20120807, end: 20120911
  8. TYLENOL [Concomitant]
     Dosage: 3-4 TIMES PER DAY (MORNING, NOON, NIGHT, BEDTIME)

REACTIONS (1)
  - Contusion [Not Recovered/Not Resolved]
